FAERS Safety Report 7132064-9 (Version None)
Quarter: 2010Q4

REPORT INFORMATION
  Report Type: 
  Country: None (occurrence: None)
  Receive Date: 20101202
  Receipt Date: 20101119
  Transmission Date: 20110411
  Serious: Yes (Other)
  Sender: FDA-Public Use
  Company Number: PHHY2010AU80318

PATIENT
  Sex: Female

DRUGS (1)
  1. ACLASTA [Suspect]
     Indication: OSTEOPOROSIS
     Dosage: 5 MG
     Route: 042
     Dates: start: 20101001

REACTIONS (6)
  - CHEST DISCOMFORT [None]
  - FEELING HOT [None]
  - INFLUENZA LIKE ILLNESS [None]
  - RASH PRURITIC [None]
  - SKIN EXFOLIATION [None]
  - TREMOR [None]
